FAERS Safety Report 8287220-3 (Version None)
Quarter: 2012Q2

REPORT INFORMATION
  Report Type: 
  Country: None (occurrence: None)
  Receive Date: 20120411
  Receipt Date: 20120328
  Transmission Date: 20120825
  Serious: Yes (Death)
  Sender: FDA-Public Use
  Company Number: B0793139A

PATIENT
  Age: 8 Year
  Sex: Female

DRUGS (10)
  1. CARBOPLATIN [Suspect]
     Indication: BONE MARROW TRANSPLANT
  2. DACARBAZINE [Concomitant]
  3. IOBENGUANE (FORMULATION UNKNOWN) (IOBENGUANE) [Suspect]
     Indication: BONE MARROW TRANSPLANT
     Dosage: 100 MCI
  4. VINCRISTINE [Concomitant]
  5. CISPLATIN [Concomitant]
  6. ETOPOSIDE [Suspect]
     Indication: BONE MARROW TRANSPLANT
  7. DOXORUBICIN HYDROCHLORIDE [Concomitant]
  8. MELPHALAN HYDROCHLORIDE [Suspect]
     Indication: BONE MARROW TRANSPLANT
  9. CYCLOPHOSPHAMIDE [Concomitant]
  10. IFOSFAMIDE [Concomitant]

REACTIONS (4)
  - GRAFT VERSUS HOST DISEASE [None]
  - HAEMORRHAGE INTRACRANIAL [None]
  - RASH ERYTHEMATOUS [None]
  - HYPERTENSION [None]
